FAERS Safety Report 5629404-6 (Version None)
Quarter: 2008Q1

REPORT INFORMATION
  Report Type: 
  Country: None (occurrence: None)
  Receive Date: 20080215
  Receipt Date: 20080215
  Transmission Date: 20080703
  Serious: Yes (Death, Life-Threatening, Disabling, Other)
  Sender: FDA-Public Use
  Company Number: None

PATIENT
  Age: 81 Year
  Sex: Female
  Weight: 53.978 kg

DRUGS (2)
  1. INTRON A [Suspect]
     Indication: NEOPLASM MALIGNANT
     Dosage: 3 MIU MULTI/DOSE PEN/ 0.2ML   3 TIME WK. SUBCUTANEOUS INJECTION (DISCONTINUED -SISTER HOME)
     Route: 058
     Dates: start: 19991129, end: 20030601
  2. INTRON A [Suspect]
     Indication: RENAL CELL CARCINOMA
     Dosage: 3 MIU MULTI/DOSE PEN/ 0.2ML   3 TIME WK. SUBCUTANEOUS INJECTION (DISCONTINUED -SISTER HOME)
     Route: 058
     Dates: start: 19991129, end: 20030601

REACTIONS (7)
  - ANOREXIA [None]
  - CONFUSIONAL STATE [None]
  - DISORIENTATION [None]
  - FALL [None]
  - MENTAL DISORDER [None]
  - PALLOR [None]
  - WEIGHT DECREASED [None]
